FAERS Safety Report 23114351 (Version 2)
Quarter: 2023Q4

REPORT INFORMATION
  Report Type: Spontaneous
  Country: JP (occurrence: JP)
  Receive Date: 20231027
  Receipt Date: 20231110
  Transmission Date: 20240110
  Serious: Yes (Life-Threatening, Hospitalization, Other)
  Sender: FDA-Public Use
  Company Number: JP-Accord-386402

PATIENT
  Age: 61 Year
  Sex: Female

DRUGS (8)
  1. TACROLIMUS [Suspect]
     Active Substance: TACROLIMUS
     Indication: Immune-mediated myositis
     Dosage: LOW DOSE
     Route: 048
  2. METHYLPREDNISOLONE [Concomitant]
     Active Substance: METHYLPREDNISOLONE
     Indication: Immune-mediated myositis
     Route: 042
  3. IMMUNOGLOBULIN [Concomitant]
     Indication: Immune-mediated myositis
     Dosage: STRENGTH: 10%?0.4 G/KG
     Route: 042
  4. METHYLPREDNISOLONE [Concomitant]
     Active Substance: METHYLPREDNISOLONE
     Indication: Anti-SRP antibody positive
  5. METHYLPREDNISOLONE [Concomitant]
     Active Substance: METHYLPREDNISOLONE
     Indication: Myopathy
  6. METHYLPREDNISOLONE [Concomitant]
     Active Substance: METHYLPREDNISOLONE
     Indication: Immune-mediated myositis
     Dosage: SECOND COURSE
     Route: 042
  7. TACROLIMUS [Suspect]
     Active Substance: TACROLIMUS
     Indication: Anti-SRP antibody positive
     Dosage: LOW DOSE
     Route: 048
  8. IMMUNOGLOBULIN [Concomitant]
     Indication: Anti-SRP antibody positive
     Dosage: STRENGTH: 10%?0.4 G/KG
     Route: 042

REACTIONS (6)
  - Thrombotic microangiopathy [Unknown]
  - Renal artery stenosis [Unknown]
  - Renal ischaemia [Unknown]
  - Renal artery occlusion [Unknown]
  - Renal failure [Unknown]
  - Renal necrosis [Unknown]
